FAERS Safety Report 16892587 (Version 2)
Quarter: 2022Q2

REPORT INFORMATION
  Report Type: Spontaneous
  Country: US (occurrence: US)
  Receive Date: 20191007
  Receipt Date: 20220425
  Transmission Date: 20220721
  Serious: Yes (Hospitalization)
  Sender: FDA-Public Use
  Company Number: US-TEVA-2019-US-1118782

PATIENT
  Age: 78 Year
  Sex: Female

DRUGS (4)
  1. HYDROCHLOROTHIAZIDE [Suspect]
     Active Substance: HYDROCHLOROTHIAZIDE
     Indication: Atrial fibrillation
     Dosage: 25 MILLIGRAM DAILY;
     Route: 065
  2. HYDROCHLOROTHIAZIDE [Suspect]
     Active Substance: HYDROCHLOROTHIAZIDE
     Indication: Diuretic therapy
  3. ENALAPRIL [Suspect]
     Active Substance: ENALAPRIL
     Indication: Drug therapy
     Dosage: 40 MILLIGRAM DAILY;
     Route: 048
  4. FLECAINIDE [Suspect]
     Active Substance: FLECAINIDE
     Indication: Atrial fibrillation
     Dosage: 100 MILLIGRAM DAILY;
     Route: 065

REACTIONS (6)
  - Sinus bradycardia [Recovered/Resolved]
  - Electrocardiogram QRS complex prolonged [Recovered/Resolved]
  - Hyponatraemia [Recovered/Resolved]
  - Device malfunction [Unknown]
  - Renal injury [Recovered/Resolved]
  - Cardiotoxicity [Recovered/Resolved]
